FAERS Safety Report 12509812 (Version 2)
Quarter: 2016Q3

REPORT INFORMATION
  Report Type: Spontaneous
  Country: US (occurrence: US)
  Receive Date: 20160629
  Receipt Date: 20160909
  Transmission Date: 20161109
  Serious: Yes (Other)
  Sender: FDA-Public Use
  Company Number: US-TEVA-671063USA

PATIENT
  Sex: Female

DRUGS (4)
  1. TOPAMAX [Concomitant]
     Active Substance: TOPIRAMATE
  2. VYVANSE [Concomitant]
     Active Substance: LISDEXAMFETAMINE DIMESYLATE
  3. ZECUITY [Suspect]
     Active Substance: SUMATRIPTAN SUCCINATE
     Indication: HEADACHE
     Route: 062
  4. WELLBUTRIN [Concomitant]
     Active Substance: BUPROPION HYDROCHLORIDE

REACTIONS (12)
  - Circumstance or information capable of leading to medication error [Unknown]
  - Application site irritation [Recovered/Resolved]
  - Application site burn [Recovered/Resolved]
  - Application site inflammation [Recovered/Resolved]
  - Application site reaction [Recovered/Resolved]
  - Incorrect drug administration duration [Unknown]
  - Application site discolouration [Recovered/Resolved]
  - Application site erythema [Recovered/Resolved]
  - Application site urticaria [Recovered/Resolved]
  - Drug ineffective [Unknown]
  - Application site pain [Recovered/Resolved]
  - Application site discomfort [Recovered/Resolved]
